FAERS Safety Report 8215105-7 (Version None)
Quarter: 2012Q1

REPORT INFORMATION
  Report Type: 
  Country: None (occurrence: None)
  Receive Date: 20120316
  Receipt Date: 20120313
  Transmission Date: 20120608
  Serious: Yes (Death)
  Sender: FDA-Public Use
  Company Number: PHHY2012BG022218

PATIENT
  Sex: Male

DRUGS (8)
  1. FLUCONAZOLE [Concomitant]
  2. MEROPENEM [Suspect]
     Indication: BEZOAR
  3. MEROPENEM [Suspect]
     Indication: NEPHRITIS
  4. MEROPENEM [Suspect]
     Indication: RENAL FAILURE
  5. CORTICOSTEROIDS [Concomitant]
  6. ITRACONAZOLE [Suspect]
     Indication: RENAL FAILURE
  7. ITRACONAZOLE [Suspect]
     Indication: BEZOAR
  8. ITRACONAZOLE [Suspect]
     Indication: NEPHRITIS

REACTIONS (5)
  - APATHY [None]
  - DECREASED APPETITE [None]
  - PYREXIA [None]
  - OLIGURIA [None]
  - DEATH [None]
